FAERS Safety Report 17107346 (Version 1)
Quarter: 2019Q4

REPORT INFORMATION
  Report Type: Report from Study
  Country: DE (occurrence: DE)
  Receive Date: 20191203
  Receipt Date: 20191203
  Transmission Date: 20200122
  Serious: Yes (Hospitalization)
  Sender: FDA-Public Use
  Company Number: NVSC2019DE033997

PATIENT
  Age: 77 Year
  Sex: Male
  Weight: 62 kg

DRUGS (5)
  1. BLINDED AIN457 [Suspect]
     Active Substance: SECUKINUMAB
     Indication: TEMPORAL ARTERITIS
     Dosage: CODE NOT BROKEN
     Route: 058
     Dates: start: 20191022
  2. BLINDED PLACEBO [Suspect]
     Active Substance: INVESTIGATIONAL PRODUCT
     Indication: TEMPORAL ARTERITIS
     Dosage: CODE NOT BROKEN
     Route: 058
     Dates: start: 20191022
  3. PREDNISOLONE. [Suspect]
     Active Substance: PREDNISOLONE
     Indication: TEMPORAL ARTERITIS
     Dosage: 40 MG
     Route: 065
  4. BLINDED AIN457 [Suspect]
     Active Substance: SECUKINUMAB
     Indication: TEMPORAL ARTERITIS
     Dosage: CODE NOT BROKEN
     Route: 058
     Dates: start: 20191022
  5. BLINDED NO TREATMENT RECEIVED [Suspect]
     Active Substance: INVESTIGATIONAL PRODUCT
     Indication: TEMPORAL ARTERITIS
     Dosage: CODE NOT BROKEN
     Route: 058
     Dates: start: 20191022

REACTIONS (1)
  - Neurological symptom [Recovered/Resolved]

NARRATIVE: CASE EVENT DATE: 20191106
